FAERS Safety Report 10661648 (Version 1)
Quarter: 2014Q4

REPORT INFORMATION
  Report Type: Spontaneous
  Country: FR (occurrence: FR)
  Receive Date: 20141218
  Receipt Date: 20141218
  Transmission Date: 20150529
  Serious: Yes (Hospitalization)
  Sender: FDA-Public Use
  Company Number: FR-PFIZER INC-2014339596

PATIENT
  Age: 72 Year
  Sex: Female

DRUGS (18)
  1. ARACYTINE [Suspect]
     Active Substance: CYTARABINE
     Indication: NEOPLASM MALIGNANT
     Dosage: UNK, SINGLE
     Route: 037
     Dates: start: 20141106, end: 20141106
  2. METHOTREXATE (METHOTREXATE SODIUM) [Suspect]
     Active Substance: METHOTREXATE SODIUM
     Dosage: UNK
     Route: 037
     Dates: start: 20141029, end: 20141029
  3. NEBIVOLOL [Concomitant]
     Active Substance: NEBIVOLOL
     Dosage: UNK
  4. ENDOXAN [Suspect]
     Active Substance: CYCLOPHOSPHAMIDE
     Dosage: 470 MG, 1X/DAY
     Route: 042
     Dates: start: 20141118, end: 20141120
  5. METHOTREXATE (METHOTREXATE SODIUM) [Suspect]
     Active Substance: METHOTREXATE SODIUM
     Dosage: UNK
     Route: 037
     Dates: start: 20141106, end: 20141106
  6. INEXIUM /01479302/ [Concomitant]
     Active Substance: ESOMEPRAZOLE MAGNESIUM
     Dosage: UNK
  7. ZAVEDOS [Suspect]
     Active Substance: IDARUBICIN
     Indication: NEOPLASM MALIGNANT
     Dosage: UNK
     Route: 042
     Dates: start: 20141102, end: 20141102
  8. VINCRISTINE HOSPIRA [Suspect]
     Active Substance: VINCRISTINE
     Dosage: UNK
     Route: 042
     Dates: start: 20141102, end: 20141102
  9. ZAVEDOS [Suspect]
     Active Substance: IDARUBICIN
     Dosage: 10 MG, 1X/DAY
     Route: 042
     Dates: start: 20141110, end: 20141110
  10. VINCRISTINE HOSPIRA [Suspect]
     Active Substance: VINCRISTINE
     Dosage: 1 MG, 1X/DAY
     Route: 042
     Dates: start: 20141109, end: 20141109
  11. ARACYTINE [Suspect]
     Active Substance: CYTARABINE
     Dosage: 95 MG, 1X/DAY
     Route: 042
     Dates: start: 20141119, end: 20141122
  12. METHOTREXATE (METHOTREXATE SODIUM) [Suspect]
     Active Substance: METHOTREXATE SODIUM
     Dosage: 12 MG, 1X/DAY
     Route: 037
     Dates: start: 20141113, end: 20141113
  13. VANCOMYCINE SANDOZ [Concomitant]
     Active Substance: VANCOMYCIN
     Dosage: UNK
     Dates: start: 20141116
  14. ROCEPHINE [Concomitant]
     Active Substance: CEFTRIAXONE SODIUM
     Dosage: UNK
     Dates: start: 20141114
  15. ARACYTINE [Suspect]
     Active Substance: CYTARABINE
     Dosage: 40 MG, SINGLE
     Route: 037
     Dates: start: 20141112, end: 20141112
  16. ZAVEDOS [Suspect]
     Active Substance: IDARUBICIN
     Dosage: UNK
     Route: 042
     Dates: start: 20141103, end: 20141103
  17. ZAVEDOS [Suspect]
     Active Substance: IDARUBICIN
     Dosage: UNK
     Route: 042
     Dates: start: 20141109, end: 20141109
  18. ZELITREX [Concomitant]
     Active Substance: VALACYCLOVIR HYDROCHLORIDE
     Dosage: UNK
     Dates: start: 20141023

REACTIONS (8)
  - Confusional state [Recovered/Resolved]
  - Dysarthria [Recovered/Resolved]
  - Facial paresis [Recovered/Resolved]
  - Aphasia [Unknown]
  - Pyrexia [Unknown]
  - Disease progression [Unknown]
  - Paresis [Recovered/Resolved]
  - Neoplasm malignant [Unknown]

NARRATIVE: CASE EVENT DATE: 20141119
